FAERS Safety Report 9699200 (Version 1)
Quarter: 2013Q4

REPORT INFORMATION
  Report Type: Spontaneous
  Country: US (occurrence: US)
  Receive Date: 20131120
  Receipt Date: 20131120
  Transmission Date: 20140711
  Serious: No
  Sender: FDA-Public Use
  Company Number: US-GILEAD-2008-0015115

PATIENT
  Age: 76 Year
  Sex: Male
  Weight: 95.25 kg

DRUGS (8)
  1. LETAIRIS [Suspect]
     Indication: PULMONARY ARTERIAL HYPERTENSION
     Route: 048
     Dates: start: 20071005
  2. CELLCEPT [Concomitant]
     Indication: IMMUNOSUPPRESSION
     Route: 048
  3. IMDUR [Concomitant]
     Indication: CHEST PAIN
     Route: 048
  4. NORVASC [Concomitant]
     Indication: ESSENTIAL HYPERTENSION
     Route: 048
  5. HYTRIN [Concomitant]
     Indication: BENIGN PROSTATIC HYPERPLASIA
     Route: 048
  6. SINGULAIR [Concomitant]
     Indication: ASTHMA
     Route: 048
  7. CLARITIN [Concomitant]
     Indication: RHINITIS ALLERGIC
     Route: 048
  8. XANAX [Concomitant]
     Indication: ANXIETY DISORDER
     Route: 048

REACTIONS (1)
  - Dizziness [Recovered/Resolved]
